FAERS Safety Report 7135805 (Version 3)
Quarter: 2013Q1

REPORT INFORMATION
  Report Type: Spontaneous
  Country: GB (occurrence: GB)
  Receive Date: 20091001
  Receipt Date: 20130123
  Transmission Date: 20140127
  Serious: Yes (Other)
  Sender: FDA-Public Use
  Company Number: PHHY2009GB40888

PATIENT
  Age: 45 Year
  Sex: Female

DRUGS (5)
  1. CLOZARIL [Suspect]
     Indication: SCHIZOPHRENIA, PARANOID TYPE
     Dosage: 300 MG, UNK
     Route: 048
     Dates: start: 20090803, end: 20090918
  2. CLOZARIL [Suspect]
  3. VENLAFAXINE [Concomitant]
     Indication: DEPRESSED MOOD
     Dosage: 150 MG, UNK
     Route: 048
  4. OMEPRAZOLE [Concomitant]
     Indication: HIATUS HERNIA
     Dosage: 20 MG, UNK
     Route: 048
  5. HYOSCINE [Concomitant]
     Indication: SALIVARY HYPERSECRETION
     Dosage: 1 MG EVERY 72 HOURS
     Route: 062
     Dates: start: 20090817, end: 20090909

REACTIONS (3)
  - Hiatus hernia [Not Recovered/Not Resolved]
  - Condition aggravated [Not Recovered/Not Resolved]
  - Weight increased [Not Recovered/Not Resolved]
